FAERS Safety Report 6189754-4 (Version None)
Quarter: 2009Q2

REPORT INFORMATION
  Report Type: 
  Country: None (occurrence: None)
  Receive Date: 20090512
  Receipt Date: 20090427
  Transmission Date: 20091009
  Serious: Yes (Other)
  Sender: FDA-Public Use
  Company Number: 2009S1007291

PATIENT
  Sex: Female

DRUGS (7)
  1. DAUNORUBICIN HCL [Suspect]
     Indication: CHLOROMA
     Dosage: 45 MG/M**2;NULL_1_DAY;
  2. CYTARABINE [Suspect]
     Indication: CHLOROMA
     Dosage: 100 MG/**2; DAILY, 2000 MG/M**2
  3. MITOXANTRONE         (MITOXANTRONE) [Suspect]
     Indication: ACUTE MYELOID LEUKAEMIA
     Dosage: 10 MG/M**2;DAILY
  4. MERCAPTOPURINE [Suspect]
     Indication: ACUTE MYELOID LEUKAEMIA
     Dosage: 90 MG/M**2;DAILY
     Dates: start: 20040801
  5. METHOTREXATE [Suspect]
     Indication: ACUTE MYELOID LEUKAEMIA
     Dosage: 15 MG/M**2;DAILY
  6. TRETINOIN [Concomitant]
  7. ARSENIC TRIOXIDE [Concomitant]

REACTIONS (2)
  - ACUTE MYELOID LEUKAEMIA [None]
  - LEUKAEMIA RECURRENT [None]
